FAERS Safety Report 7499578-3 (Version None)
Quarter: 2011Q2

REPORT INFORMATION
  Report Type: 
  Country: None (occurrence: None)
  Receive Date: 20110516
  Receipt Date: 20100329
  Transmission Date: 20111010
  Serious: Yes (Hospitalization, Other)
  Sender: FDA-Public Use
  Company Number: 2010SP019262

PATIENT
  Age: 41 Year
  Sex: Female
  Weight: 71.2147 kg

DRUGS (1)
  1. NUVARING [Suspect]
     Indication: HOT FLUSH
     Dates: start: 20071001, end: 20080301

REACTIONS (2)
  - OOPHORECTOMY [None]
  - PULMONARY EMBOLISM [None]
